FAERS Safety Report 10305093 (Version 1)
Quarter: 2014Q3

REPORT INFORMATION
  Report Type: Spontaneous
  Country: AR (occurrence: AR)
  Receive Date: 20140715
  Receipt Date: 20140715
  Transmission Date: 20150326
  Serious: Yes (Death, Other)
  Sender: FDA-Public Use
  Company Number: AR-SA-2014SA090561

PATIENT
  Age: 9 Year
  Sex: Male
  Weight: 19.5 kg

DRUGS (2)
  1. MYOZYME [Suspect]
     Active Substance: ALGLUCOSIDASE ALFA
     Indication: GLYCOGEN STORAGE DISEASE TYPE II
     Route: 042
     Dates: start: 2011, end: 201406
  2. MYOZYME [Suspect]
     Active Substance: ALGLUCOSIDASE ALFA
     Indication: GLYCOGEN STORAGE DISEASE TYPE II
     Route: 042
     Dates: start: 200503, end: 2011

REACTIONS (7)
  - Disease progression [Fatal]
  - Tracheal fistula [Fatal]
  - Haemorrhage [Fatal]
  - Convulsion [Unknown]
  - Antibody test positive [Unknown]
  - Lower motor neurone lesion [Unknown]
  - Urinary tract infection [Unknown]

NARRATIVE: CASE EVENT DATE: 2011
